FAERS Safety Report 12169705 (Version 1)
Quarter: 2016Q1

REPORT INFORMATION
  Report Type: Spontaneous
  Country: BR (occurrence: BR)
  Receive Date: 20160310
  Receipt Date: 20160310
  Transmission Date: 20160526
  Serious: Yes (Other)
  Sender: FDA-Public Use
  Company Number: BR-GILEAD-2016-0201974

PATIENT
  Sex: Male

DRUGS (1)
  1. SOVALDI [Suspect]
     Active Substance: SOFOSBUVIR
     Indication: HEPATITIS C VIRUS TEST POSITIVE
     Route: 065

REACTIONS (1)
  - Hepatic cirrhosis [Unknown]
